FAERS Safety Report 7256173-9 (Version None)
Quarter: 2011Q1

REPORT INFORMATION
  Report Type: 
  Country: None (occurrence: None)
  Receive Date: 20110129
  Receipt Date: 20100502
  Transmission Date: 20110831
  Serious: No
  Sender: FDA-Public Use
  Company Number: US-ABBOTT-10P-163-0618573-00

PATIENT
  Sex: Male
  Weight: 70.37 kg

DRUGS (5)
  1. MULTI-VITAMINS [Concomitant]
     Indication: PRODUCT USED FOR UNKNOWN INDICATION
  2. BENADRYL [Concomitant]
     Indication: HYPERSENSITIVITY
  3. CIPRO [Concomitant]
     Indication: FISTULA
  4. ATARALL [Concomitant]
     Indication: ATTENTION DEFICIT/HYPERACTIVITY DISORDER
  5. HUMIRA [Suspect]
     Indication: CROHN'S DISEASE
     Dates: start: 20090901

REACTIONS (10)
  - FEELING ABNORMAL [None]
  - DECREASED APPETITE [None]
  - DIARRHOEA [None]
  - INJECTION SITE PAIN [None]
  - ABDOMINAL RIGIDITY [None]
  - LOSS OF LIBIDO [None]
  - ABDOMINAL DISCOMFORT [None]
  - NAUSEA [None]
  - FATIGUE [None]
  - DRUG INEFFECTIVE [None]
